FAERS Safety Report 11832716 (Version 2)
Quarter: 2015Q4

REPORT INFORMATION
  Report Type: Spontaneous
  Country: JP (occurrence: JP)
  Receive Date: 20151214
  Receipt Date: 20151229
  Transmission Date: 20160305
  Serious: Yes (Hospitalization, Other)
  Sender: FDA-Public Use
  Company Number: JP-GLAXOSMITHKLINE-JP2015JPN167305

PATIENT
  Age: 5 Year
  Sex: Male
  Weight: 17 kg

DRUGS (6)
  1. FLUTIDE DISKUS [Suspect]
     Active Substance: FLUTICASONE PROPIONATE
     Dosage: 400 ?G, 1D
     Route: 055
     Dates: start: 20090520
  2. GASTER [Concomitant]
     Active Substance: FAMOTIDINE
     Indication: GASTROOESOPHAGEAL REFLUX PROPHYLAXIS
     Dosage: UNK
  3. SERETIDE [Suspect]
     Active Substance: FLUTICASONE FUROATE\SALMETEROL XINAFOATE
     Indication: ASTHMA
     Dosage: 200 ?G, 1D
     Route: 055
     Dates: start: 20090407, end: 20090519
  4. FLUTIDE DISKUS [Suspect]
     Active Substance: FLUTICASONE PROPIONATE
     Dosage: 300 ?G, 1D
     Route: 055
     Dates: start: 20090407, end: 20090519
  5. FLUTIDE DISKUS [Suspect]
     Active Substance: FLUTICASONE PROPIONATE
     Indication: ASTHMA
     Dosage: 400 ?G, 1D
     Route: 055
     Dates: start: 20090107
  6. ONON [Concomitant]
     Active Substance: PRANLUKAST
     Indication: RHINITIS ALLERGIC
     Dosage: UNK

REACTIONS (3)
  - Adrenal suppression [Recovered/Resolved]
  - Prescribed overdose [Unknown]
  - Pallor [Unknown]

NARRATIVE: CASE EVENT DATE: 20090519
